FAERS Safety Report 8031462-9 (Version None)
Quarter: 2011Q4

REPORT INFORMATION
  Report Type: 
  Country: None (occurrence: None)
  Receive Date: 20111202
  Receipt Date: 20090827
  Transmission Date: 20120403
  Serious: Yes (Hospitalization, Other)
  Sender: FDA-Public Use
  Company Number: 2009-193882-NL

PATIENT
  Age: 35 Year
  Sex: Female
  Weight: 90.7194 kg

DRUGS (4)
  1. SYNTHROID [Concomitant]
  2. NUVARING [Suspect]
     Indication: CONTRACEPTION
     Dosage: ; VAG
     Route: 067
     Dates: start: 20050101, end: 20070328
  3. VITAMIN AND MINERAL PRENATAL SUPPLEMENT W/ FOLIC ACID CAP [Concomitant]
  4. METFORMIN HCL [Concomitant]

REACTIONS (5)
  - DEEP VEIN THROMBOSIS [None]
  - COUGH [None]
  - PULMONARY EMBOLISM [None]
  - BRONCHITIS [None]
  - MENSTRUAL DISORDER [None]
